FAERS Safety Report 5312561-9 (Version None)
Quarter: 2007Q2

REPORT INFORMATION
  Report Type: 
  Country: None (occurrence: None)
  Receive Date: 20070430
  Receipt Date: 20061228
  Transmission Date: 20071010
  Serious: No
  Sender: FDA-Public Use
  Company Number: 2006UW28688

PATIENT
  Age: 58 Year
  Sex: Female
  Weight: 78.9 kg

DRUGS (22)
  1. NEXIUM [Suspect]
     Indication: GASTROOESOPHAGEAL REFLUX DISEASE
     Route: 048
     Dates: start: 20010101
  2. NEXIUM [Suspect]
     Route: 048
     Dates: end: 20061001
  3. NEXIUM [Suspect]
     Route: 048
     Dates: start: 20061001
  4. LEVSIN [Concomitant]
  5. CARAFATE [Concomitant]
  6. LIDODERM PATCH [Concomitant]
  7. OXYCONTIN [Concomitant]
  8. LYRICA [Concomitant]
  9. VALIUM [Concomitant]
  10. DIGESTIVE ADVANTAGE FLORA-Q [Concomitant]
  11. TRAZODONE HCL [Concomitant]
  12. EFFEXOR [Concomitant]
  13. TIGAN [Concomitant]
  14. ZOFRAN [Concomitant]
  15. GLYCERIN SUPPOSITORIES [Concomitant]
  16. NITROFURANTION [Concomitant]
  17. ALLEGRA [Concomitant]
  18. PROBIOTIC LACTOBACILLUS [Concomitant]
  19. NITROGLYCERIN [Concomitant]
  20. DITROPAN [Concomitant]
  21. ASPIRIN [Concomitant]
  22. GINGERAID [Concomitant]

REACTIONS (5)
  - ARTHROPATHY [None]
  - BONE DISORDER [None]
  - DYSPEPSIA [None]
  - IRRITABLE BOWEL SYNDROME [None]
  - URINARY TRACT INFECTION [None]
